FAERS Safety Report 13431248 (Version 2)
Quarter: 2017Q2

REPORT INFORMATION
  Report Type: Spontaneous
  Country: DE (occurrence: DE)
  Receive Date: 20170412
  Receipt Date: 20170522
  Transmission Date: 20170830
  Serious: Yes (Hospitalization, Other)
  Sender: FDA-Public Use
  Company Number: DE-AMGEN-DEUSP2017055177

PATIENT
  Age: 57 Year
  Sex: Male
  Weight: 130 kg

DRUGS (16)
  1. MCP [Concomitant]
     Active Substance: METOCLOPRAMIDE HYDROCHLORIDE
  2. TAVOR (LORAZEPAM) [Concomitant]
     Active Substance: LORAZEPAM
     Dosage: 1 MG, AS NECESSARY, MAXIMUM EVERY FOUR HOURS
  3. HYDROMORPHON AL [Concomitant]
     Dosage: 500/100, 1 ML/HOUR 5+ AS REQUIRED 2 ML BOLUS DOSE/HOUR
  4. XGEVA [Suspect]
     Active Substance: DENOSUMAB
     Indication: PROSTATE CANCER
  5. ACC [Concomitant]
     Active Substance: ACETYLCYSTEINE
     Dosage: 600 MG, QD
  6. HALDOL [Concomitant]
     Active Substance: HALOPERIDOL
     Dosage: 3-5 DROPS, MAXIMUM EVERY SIX HOURS
  7. IBUPROFEN. [Concomitant]
     Active Substance: IBUPROFEN
     Dosage: 800 MG, AS NECESSARY, MAXIMUM THREE PER DAY
  8. ZYTIGA [Concomitant]
     Active Substance: ABIRATERONE ACETATE
     Indication: PROSTATE CANCER
     Dosage: 1000 NG, QD
     Dates: start: 20160707
  9. BIFITERAL [Concomitant]
     Active Substance: LACTULOSE
     Dosage: 10 ML, BID
  10. XGEVA [Suspect]
     Active Substance: DENOSUMAB
     Indication: METASTASES TO BONE
     Dosage: 120 MG, Q4WK
     Route: 058
     Dates: start: 20140716, end: 20160909
  11. PREDNISOLON [Concomitant]
     Active Substance: PREDNISOLONE
     Indication: PROSTATE CANCER
     Dosage: 10 MG, QD
     Dates: start: 20160707
  12. PANTOPRAZOLE [Concomitant]
     Active Substance: PANTOPRAZOLE
     Dosage: 40 MG, BID
  13. TAMSULOSIN BETA [Concomitant]
     Dosage: 0.4 MG, QD
  14. ASA [Concomitant]
     Active Substance: ASPIRIN
     Dosage: 100 MG, UNK
  15. CALCIGEN [Concomitant]
     Dosage: 600/400, QD
  16. LAXOBERAL [Concomitant]
     Active Substance: SODIUM PICOSULFATE
     Dosage: 15 DROPS

REACTIONS (1)
  - Osteonecrosis of jaw [Recovered/Resolved]

NARRATIVE: CASE EVENT DATE: 20161014
